FAERS Safety Report 6791035-2 (Version None)
Quarter: 2010Q2

REPORT INFORMATION
  Report Type: 
  Country: None (occurrence: None)
  Receive Date: 20100624
  Receipt Date: 20100617
  Transmission Date: 20101027
  Serious: Yes (Death, Hospitalization)
  Sender: FDA-Public Use
  Company Number: ES-AMGEN-KDC413137

PATIENT
  Sex: Male

DRUGS (4)
  1. ROMIPLOSTIM [Suspect]
     Indication: IDIOPATHIC THROMBOCYTOPENIC PURPURA
     Route: 058
     Dates: start: 20100201, end: 20100427
  2. DAFLON [Concomitant]
  3. DEZACOR [Concomitant]
  4. FOSAMAX [Concomitant]

REACTIONS (2)
  - PULMONARY HAEMORRHAGE [None]
  - PULMONARY THROMBOSIS [None]
